FAERS Safety Report 6095899-X (Version None)
Quarter: 2009Q1

REPORT INFORMATION
  Report Type: 
  Country: None (occurrence: None)
  Receive Date: 20090227
  Receipt Date: 20080701
  Transmission Date: 20090719
  Serious: Yes (Other)
  Sender: FDA-Public Use
  Company Number: A0737076A

PATIENT
  Age: 46 Year
  Sex: Female

DRUGS (6)
  1. LAMICTAL [Suspect]
     Indication: BIPOLAR DISORDER
     Route: 048
     Dates: start: 19980101
  2. ATENOLOL [Concomitant]
  3. ZOCOR [Concomitant]
  4. TRILEPTAL [Concomitant]
  5. ATIVAN [Concomitant]
  6. LEVOXYL [Concomitant]

REACTIONS (2)
  - ACNE [None]
  - ALOPECIA [None]
